FAERS Safety Report 8841911 (Version 2)
Quarter: 2012Q4

REPORT INFORMATION
  Report Type: 
  Country: US (occurrence: US)
  Receive Date: 20121016
  Receipt Date: 20121019
  Transmission Date: 20130627
  Serious: Yes (Hospitalization)
  Sender: FDA-Public Use
  Company Number: US-BAYER-2012-106260

PATIENT
  Age: 36 Year
  Sex: Female

DRUGS (3)
  1. YAZ [Suspect]
     Dosage: UNK
     Dates: start: 200810, end: 201011
  2. LEXAPRO [Concomitant]
     Dosage: 10 mg, DAILY
  3. CLONAZEPAM [Concomitant]
     Indication: ANXIETY
     Dosage: 0.5 mg, BID
     Route: 048

REACTIONS (3)
  - Pulmonary embolism [None]
  - Deep vein thrombosis [None]
  - Pelvic venous thrombosis [Recovered/Resolved]
